FAERS Safety Report 5821927-X (Version None)
Quarter: 2008Q3

REPORT INFORMATION
  Report Type: 
  Country: None (occurrence: None)
  Receive Date: 20080724
  Receipt Date: 20080716
  Transmission Date: 20090109
  Serious: Yes (Hospitalization, Other)
  Sender: FDA-Public Use
  Company Number: US-ABBOTT-08P-163-0462575-00

PATIENT
  Sex: Male
  Weight: 72.64 kg

DRUGS (7)
  1. HUMIRA [Suspect]
     Indication: RHEUMATOID ARTHRITIS
     Route: 058
     Dates: start: 20060601, end: 20071101
  2. HUMIRA [Suspect]
     Indication: RHEUMATOID ARTHRITIS
     Route: 058
     Dates: start: 20080301
  3. LEFLUNOMIDE [Concomitant]
     Indication: RHEUMATOID ARTHRITIS
     Route: 048
     Dates: start: 20040101
  4. PREDNISONE TAB [Concomitant]
     Indication: RHEUMATOID ARTHRITIS
     Route: 048
     Dates: start: 20040101
  5. VICODIN [Concomitant]
     Indication: RHEUMATOID ARTHRITIS
     Dosage: 10/5; UP TO 4 TABS DAILY
     Route: 048
     Dates: start: 20060101
  6. CLOTRIMAZOLE [Concomitant]
     Indication: HYPERTENSION
     Route: 048
     Dates: start: 20060101
  7. PANTOPRAZOLE SODIUM [Concomitant]
     Indication: SUPPLEMENTATION THERAPY
     Route: 048

REACTIONS (12)
  - ACCIDENTAL EXPOSURE [None]
  - COUGH [None]
  - HAEMATEMESIS [None]
  - HEPATITIS C [None]
  - INJECTION SITE HAEMATOMA [None]
  - INJECTION SITE PAIN [None]
  - JOINT EFFUSION [None]
  - OEDEMA PERIPHERAL [None]
  - PAIN [None]
  - PNEUMONIA [None]
  - RECTAL HAEMORRHAGE [None]
  - ULCER HAEMORRHAGE [None]
